FAERS Safety Report 17950125 (Version 1)
Quarter: 2020Q2

REPORT INFORMATION
  Report Type: Spontaneous
  Country: AU (occurrence: AU)
  Receive Date: 20200626
  Receipt Date: 20200626
  Transmission Date: 20200714
  Serious: Yes (Other)
  Sender: FDA-Public Use
  Company Number: AU-ROCHE-2627488

PATIENT
  Age: 17 Year
  Sex: Female

DRUGS (3)
  1. FLUPENTIXOL DECANOATE [Suspect]
     Active Substance: FLUPENTIXOL DECANOATE
     Indication: PRODUCT USED FOR UNKNOWN INDICATION
     Dosage: DRUG WITHDRAWN
     Route: 065
  2. VALIUM [Suspect]
     Active Substance: DIAZEPAM
     Indication: PRODUCT USED FOR UNKNOWN INDICATION
     Dosage: DOSE INCREASED
     Route: 065
  3. SEROQUEL [Suspect]
     Active Substance: QUETIAPINE FUMARATE
     Indication: PRODUCT USED FOR UNKNOWN INDICATION
     Dosage: DOSE NOT CHANGED
     Route: 065

REACTIONS (9)
  - Immunodeficiency [Unknown]
  - Weight increased [Unknown]
  - Psychotic disorder [Recovering/Resolving]
  - Suicide attempt [Unknown]
  - Multiple sclerosis [Unknown]
  - Apparent death [Unknown]
  - Cardiac failure [Recovered/Resolved]
  - Scleroderma [Unknown]
  - Toxicity to various agents [Unknown]

NARRATIVE: CASE EVENT DATE: 201004
